FAERS Safety Report 12154282 (Version 1)
Quarter: 2016Q1

REPORT INFORMATION
  Report Type: Spontaneous
  Country: US (occurrence: US)
  Receive Date: 20160307
  Receipt Date: 20160307
  Transmission Date: 20160526
  Serious: No
  Sender: FDA-Public Use
  Company Number: US-ASTRAZENECA-2016SE20406

PATIENT
  Sex: Female
  Weight: 74.8 kg

DRUGS (1)
  1. PULMICORT FLEXHALER [Suspect]
     Active Substance: BUDESONIDE
     Indication: ASTHMA
     Dosage: 180 MCG,1 PUFF TWICE DAILY
     Route: 055

REACTIONS (2)
  - Tremor [Unknown]
  - Pollakiuria [Unknown]
